FAERS Safety Report 16579481 (Version 1)
Quarter: 2019Q3

REPORT INFORMATION
  Report Type: Spontaneous
  Country: DE (occurrence: DE)
  Receive Date: 20190716
  Receipt Date: 20190716
  Transmission Date: 20191004
  Serious: Yes (Hospitalization)
  Sender: FDA-Public Use
  Company Number: DE-009507513-1907DEU004224

PATIENT
  Age: 63 Year
  Sex: Female

DRUGS (5)
  1. ROFLUMILAST. [Concomitant]
     Active Substance: ROFLUMILAST
     Dosage: 500 MCG, 1-0-0-0
  2. PREDNISOLON [Concomitant]
     Active Substance: PREDNISOLONE
     Dosage: NK MG, NK
  3. OLODATEROL HYDROCHLORIDE (+) TIOTROPIUM BROMIDE [Concomitant]
     Dosage: NK ?G, 1-0-0-0
  4. BUDESONIDE. [Concomitant]
     Active Substance: BUDESONIDE
     Dosage: 0.2 MCG, 1-0-0-0
  5. PEMBROLIZUMAB. [Suspect]
     Active Substance: PEMBROLIZUMAB
     Dosage: NK MG, NK

REACTIONS (2)
  - Swelling [Unknown]
  - Erythema [Unknown]
